FAERS Safety Report 7285452-4 (Version None)
Quarter: 2011Q1

REPORT INFORMATION
  Report Type: 
  Country: None (occurrence: None)
  Receive Date: 20110210
  Receipt Date: 20101220
  Transmission Date: 20110831
  Serious: Yes (Hospitalization, Disabling, Other)
  Sender: FDA-Public Use
  Company Number: US-BAYER-201027959NA

PATIENT
  Sex: Female
  Weight: 92.971 kg

DRUGS (9)
  1. WARFARIN [Concomitant]
     Dosage: 4.5 MG, QD
  2. ZANTAC [Concomitant]
     Dosage: UNK UNK, PRN
  3. UNCODEABLE ^UNCLASSIFIABLE^ [Concomitant]
  4. PRENATAL VITAMINS [VIT C,VIT H,MIN NOS,VIT PP,RETINOL,VIT E,VIT B NOS, [Concomitant]
  5. YASMIN [Suspect]
     Indication: MENOMETRORRHAGIA
     Dosage: UNK
     Route: 048
     Dates: start: 20070305, end: 20070626
  6. CYCLOBENZAPRINE [Concomitant]
     Dosage: 10 MG, TID
  7. HYDROCODONE BITARTRATE [Concomitant]
     Dosage: UNK UNK, PRN
  8. UNCODEABLE ^UNCLASSIFIABLE^ [Concomitant]
  9. FEXOFENADINE [Concomitant]
     Dosage: 180 MG, QD

REACTIONS (5)
  - ARTHRALGIA [None]
  - OEDEMA PERIPHERAL [None]
  - DEEP VEIN THROMBOSIS [None]
  - FOOT FRACTURE [None]
  - PAIN [None]
